FAERS Safety Report 4763475-4 (Version None)
Quarter: 2005Q3

REPORT INFORMATION
  Report Type: 
  Country: None (occurrence: None)
  Receive Date: 20050908
  Receipt Date: 20050826
  Transmission Date: 20060218
  Serious: Yes (Other)
  Sender: FDA-Public Use
  Company Number: PHEH2005US09570

PATIENT
  Age: 72 Year
  Sex: Male

DRUGS (2)
  1. DIOVAN HCT [Suspect]
     Indication: HYPERTENSION
     Dosage: UNK, UNK
     Dates: start: 20040301, end: 20050801
  2. DIOVAN [Suspect]
     Dosage: UNK, UNK
     Dates: start: 20030101

REACTIONS (4)
  - HYPOTENSION [None]
  - PROSTATE CANCER [None]
  - ROTATOR CUFF REPAIR [None]
  - TRANSURETHRAL PROSTATECTOMY [None]
